APPROVED DRUG PRODUCT: VINCRISTINE SULFATE PFS
Active Ingredient: VINCRISTINE SULFATE
Strength: 1MG/ML
Dosage Form/Route: INJECTABLE;INJECTION
Application: A071484 | Product #001
Applicant: HOSPIRA WORLDWIDE, INC
Approved: Apr 19, 1988 | RLD: No | RS: Yes | Type: RX